FAERS Safety Report 6379921-9 (Version None)
Quarter: 2009Q3

REPORT INFORMATION
  Report Type: 
  Country: None (occurrence: None)
  Receive Date: 20090921
  Receipt Date: 20081210
  Transmission Date: 20100115
  Serious: Yes (Other)
  Sender: FDA-Public Use
  Company Number: 1000003048

PATIENT
  Sex: Male

DRUGS (2)
  1. CELEXA [Suspect]
     Dates: start: 20071201, end: 20080301
  2. RISPERDAL [Suspect]
     Dates: start: 20071201, end: 20080301

REACTIONS (1)
  - SUICIDE ATTEMPT [None]
